FAERS Safety Report 7603192-6 (Version None)
Quarter: 2011Q3

REPORT INFORMATION
  Report Type: 
  Country: None (occurrence: None)
  Receive Date: 20110711
  Receipt Date: 20110711
  Transmission Date: 20111222
  Serious: Yes (Hospitalization)
  Sender: FDA-Public Use
  Company Number: None

PATIENT
  Age: 25 Year
  Sex: Male
  Weight: 86.4 kg

DRUGS (4)
  1. ZOLEDRONIC ACID [Suspect]
     Indication: SPINAL CORD INJURY
     Dosage: 5 MG 2/YR INTRAVENOUS INFUSION
     Route: 042
     Dates: start: 20101229
  2. ZOLEDRONIC ACID [Suspect]
     Indication: SPINAL CORD INJURY
     Dosage: 5 MG 2/YR INTRAVENOUS INFUSION
     Route: 042
     Dates: start: 20110630
  3. VITAMIN D [Concomitant]
  4. CALCIUM (TUMS) [Concomitant]

REACTIONS (2)
  - CHILLS [None]
  - PYREXIA [None]
